FAERS Safety Report 24720270 (Version 1)
Quarter: 2024Q4

REPORT INFORMATION
  Report Type: Report from Study
  Country: GB (occurrence: GB)
  Receive Date: 20241211
  Receipt Date: 20241211
  Transmission Date: 20250115
  Serious: Yes (Life-Threatening, Hospitalization)
  Sender: CELLTRION
  Company Number: GB-CELLTRION INC.-2024GB031021

PATIENT

DRUGS (1)
  1. ADALIMUMAB-AATY [Suspect]
     Active Substance: ADALIMUMAB-AATY
     Indication: Rheumatoid arthritis
     Dosage: 40 MG PEN
     Dates: start: 202402, end: 202412

REACTIONS (3)
  - Organ failure [Unknown]
  - Body temperature increased [Unknown]
  - White blood cell count decreased [Unknown]
